FAERS Safety Report 8821130 (Version 1)
Quarter: 2012Q4

REPORT INFORMATION
  Report Type: Report from Study
  Country: FR (occurrence: FR)
  Receive Date: 20121002
  Receipt Date: 20121002
  Transmission Date: 20130627
  Serious: Yes (Hospitalization)
  Sender: FDA-Public Use
  Company Number: FR-ROCHE-1113136

PATIENT
  Age: 76 Year
  Sex: Male
  Weight: 92 kg

DRUGS (12)
  1. MABTHERA [Suspect]
     Indication: MANTLE CELL LYMPHOMA
     Dosage: on day 1
     Route: 042
     Dates: start: 20120724, end: 20120724
  2. BENDAMUSTINE [Suspect]
     Indication: MANTLE CELL LYMPHOMA
     Route: 041
     Dates: start: 20120724, end: 20120725
  3. BORTEZOMIB [Suspect]
     Indication: MANTLE CELL LYMPHOMA
     Dosage: on day 1, 4, 8 and 11
     Route: 058
     Dates: start: 20120724, end: 20120803
  4. DEXAMETHASONE [Suspect]
     Indication: MANTLE CELL LYMPHOMA
     Dosage: on day 2
     Route: 042
     Dates: start: 20120725, end: 20120725
  5. GRANOCYTE [Suspect]
     Indication: PRODUCT USED FOR UNKNOWN INDICATION
     Dosage: 34 MIU/ml
     Route: 065
     Dates: start: 20120809
  6. GRANOCYTE [Suspect]
     Route: 065
     Dates: start: 20120804, end: 20120808
  7. APROVEL [Concomitant]
     Indication: HYPERTENSION
     Route: 048
  8. PRAVASTATIN [Concomitant]
     Indication: HYPERCHOLESTEROLAEMIA
     Route: 048
  9. RASBURICASE [Concomitant]
     Indication: PREMEDICATION
     Route: 065
     Dates: start: 20120724
  10. DAFALGAN [Concomitant]
     Route: 065
     Dates: start: 20120724
  11. HYDROCORTISONE [Concomitant]
     Indication: PREMEDICATION
     Route: 065
     Dates: start: 20120724
  12. LEVOCETIRIZINE [Concomitant]
     Indication: PREMEDICATION
     Route: 065
     Dates: start: 20120724

REACTIONS (8)
  - Drug hypersensitivity [Recovered/Resolved]
  - Rash pruritic [Recovered/Resolved]
  - Bronchopneumonia [Recovered/Resolved]
  - Pyrexia [Recovered/Resolved]
  - Pyrexia [Recovered/Resolved]
  - Inflammation [Recovered/Resolved]
  - Lymphopenia [Recovered/Resolved]
  - Infection [Recovered/Resolved]
